FAERS Safety Report 4938545-8 (Version None)
Quarter: 2006Q1

REPORT INFORMATION
  Report Type: 
  Country: None (occurrence: None)
  Receive Date: 20060306
  Receipt Date: 20060220
  Transmission Date: 20060701
  Serious: Yes (Disabling)
  Sender: FDA-Public Use
  Company Number: US200602004079

PATIENT
  Age: 45 Year
  Sex: Female

DRUGS (4)
  1. ZYPREXA [Suspect]
     Indication: GENERAL PHYSICAL HEALTH DETERIORATION
     Dosage: 10 MG DAILY 1/D
     Dates: start: 20040301, end: 20040801
  2. MOBIC [Concomitant]
  3. VALTREX [Concomitant]
  4. PREMARIN [Concomitant]

REACTIONS (18)
  - BLADDER DISORDER [None]
  - BLEPHAROSPASM [None]
  - COORDINATION ABNORMAL [None]
  - DRY EYE [None]
  - DYSTONIA [None]
  - EAR PAIN [None]
  - EYE PAIN [None]
  - EYELID PTOSIS [None]
  - FACIAL SPASM [None]
  - FEELING ABNORMAL [None]
  - HYPERACUSIS [None]
  - HYPOGLYCAEMIA [None]
  - IMPAIRED DRIVING ABILITY [None]
  - IMPAIRED WORK ABILITY [None]
  - MOTION SICKNESS [None]
  - PHOTOPHOBIA [None]
  - TARDIVE DYSKINESIA [None]
  - URINARY RETENTION [None]
